FAERS Safety Report 23962481 (Version 2)
Quarter: 2024Q3

REPORT INFORMATION
  Report Type: Spontaneous
  Country: US (occurrence: US)
  Receive Date: 20240611
  Receipt Date: 20240703
  Transmission Date: 20241017
  Serious: No
  Sender: PFIZER
  Company Number: US-PFIZER INC-202400190425

PATIENT
  Age: 77 Year
  Sex: Female
  Weight: 87.54 kg

DRUGS (2)
  1. IBRANCE [Suspect]
     Active Substance: PALBOCICLIB
     Indication: Breast cancer female
     Dosage: 125 MG, CYCLIC (21 DAYS AND WAS OFF FOR 7 DAYS)
     Route: 048
     Dates: start: 201909, end: 20240531
  2. IBRANCE [Suspect]
     Active Substance: PALBOCICLIB
     Indication: Bone cancer

REACTIONS (1)
  - Neoplasm progression [Unknown]
